FAERS Safety Report 23354590 (Version 4)
Quarter: 2025Q2

REPORT INFORMATION
  Report Type: Report from Study
  Country: GB (occurrence: GB)
  Receive Date: 20240101
  Receipt Date: 20250508
  Transmission Date: 20250716
  Serious: Yes (Hospitalization, Other)
  Sender: NOVARTIS
  Company Number: GB-002147023-NVSC2022GB121399

PATIENT
  Sex: Female

DRUGS (5)
  1. COSENTYX [Suspect]
     Active Substance: SECUKINUMAB
     Indication: Ankylosing spondylitis
     Dosage: 150 MG, QMO
     Route: 058
     Dates: start: 2017
  2. COSENTYX [Suspect]
     Active Substance: SECUKINUMAB
     Dosage: 150 MG, QMO
     Route: 058
     Dates: start: 20180417
  3. DIAZEPAM [Suspect]
     Active Substance: DIAZEPAM
     Indication: Product used for unknown indication
     Route: 065
  4. VITAMIN D3 [Concomitant]
     Active Substance: CHOLECALCIFEROL
     Indication: Product used for unknown indication
     Route: 065
  5. LANSOPRAZOLE [Concomitant]
     Active Substance: LANSOPRAZOLE
     Indication: Product used for unknown indication
     Route: 065

REACTIONS (10)
  - Abdominal pain upper [Unknown]
  - Lower respiratory tract infection [Unknown]
  - Coeliac artery stenosis [Unknown]
  - Pain [Unknown]
  - Abdominal discomfort [Unknown]
  - Cardiac disorder [Unknown]
  - Heart rate irregular [Unknown]
  - Lung disorder [Unknown]
  - Liver disorder [Unknown]
  - Asthma [Unknown]
